FAERS Safety Report 15257714 (Version 2)
Quarter: 2018Q3

REPORT INFORMATION
  Report Type: Spontaneous
  Country: IT (occurrence: IT)
  Receive Date: 20180808
  Receipt Date: 20180907
  Transmission Date: 20181010
  Serious: Yes (Death, Other)
  Sender: FDA-Public Use
  Company Number: PHHY2018IT061281

PATIENT
  Age: 73 Year
  Sex: Male

DRUGS (9)
  1. BENDAMUSTINE [Suspect]
     Active Substance: BENDAMUSTINE
     Indication: MANTLE CELL LYMPHOMA
     Route: 065
  2. RITUXIMAB. [Suspect]
     Active Substance: RITUXIMAB
     Indication: MANTLE CELL LYMPHOMA
     Route: 065
  3. CYCLOPHOSPHAMIDE. [Suspect]
     Active Substance: CYCLOPHOSPHAMIDE
     Indication: AUTOIMMUNE HAEMOLYTIC ANAEMIA
  4. VINCRISTINE [Suspect]
     Active Substance: VINCRISTINE
     Indication: AUTOIMMUNE HAEMOLYTIC ANAEMIA
  5. CYCLOPHOSPHAMIDE. [Suspect]
     Active Substance: CYCLOPHOSPHAMIDE
     Indication: MANTLE CELL LYMPHOMA
     Route: 065
  6. PREDNISONE. [Suspect]
     Active Substance: PREDNISONE
     Indication: MANTLE CELL LYMPHOMA
     Route: 065
  7. RITUXIMAB. [Suspect]
     Active Substance: RITUXIMAB
     Indication: AUTOIMMUNE HAEMOLYTIC ANAEMIA
  8. VINCRISTINE [Suspect]
     Active Substance: VINCRISTINE
     Indication: MANTLE CELL LYMPHOMA
     Route: 065
  9. BENDAMUSTINE [Suspect]
     Active Substance: BENDAMUSTINE
     Indication: AUTOIMMUNE HAEMOLYTIC ANAEMIA

REACTIONS (6)
  - Multiple organ dysfunction syndrome [Fatal]
  - Haemolysis [Fatal]
  - Renal failure [Fatal]
  - Treatment failure [Unknown]
  - Therapy non-responder [Fatal]
  - Product use in unapproved indication [Fatal]
